FAERS Safety Report 24533269 (Version 2)
Quarter: 2024Q4

REPORT INFORMATION
  Report Type: Spontaneous
  Country: DE (occurrence: DE)
  Receive Date: 20241022
  Receipt Date: 20241030
  Transmission Date: 20250115
  Serious: Yes (Life-Threatening, Hospitalization, Other)
  Sender: BRISTOL-MYERS SQUIBB COMPANY
  Company Number: DE-BRISTOL-MYERS SQUIBB COMPANY-2024-165249

PATIENT
  Age: 65 Year
  Sex: Female
  Weight: 104 kg

DRUGS (7)
  1. MAVACAMTEN [Suspect]
     Active Substance: MAVACAMTEN
     Indication: Hypertrophic cardiomyopathy
     Route: 048
     Dates: start: 20240717
  2. MAVACAMTEN [Suspect]
     Active Substance: MAVACAMTEN
     Route: 048
     Dates: end: 20241008
  3. BISOPROLOL [Concomitant]
     Active Substance: BISOPROLOL\BISOPROLOL FUMARATE
     Indication: Hypertrophic cardiomyopathy
     Dosage: BISOPROLOL 5 MG/D?BISOPROLOL SINCE AT LEAST 2020 (PROBABLY LONGER) IN DIFFERENT STRENGTHS. LASTLY, 5
  4. LEVOTHYROXINE SODIUM [Concomitant]
     Active Substance: LEVOTHYROXINE SODIUM
     Indication: Hypothyroidism
     Dosage: L-THYROXIN 125 MICROG/D? 125?G 1-0-0, SINCE DIAGNOSIS, AT LEAST SINCE 2020
  5. XARELTO [Concomitant]
     Active Substance: RIVAROXABAN
     Indication: Atrial fibrillation
     Dosage: 20 MG/D?SINCE 2022, 20MG 1-0-0
     Dates: start: 2022
  6. URAPIDIL [Concomitant]
     Active Substance: URAPIDIL
     Indication: Atrial fibrillation
     Dosage: EBRANTIL 60 MG/D?SINCE 2020
     Dates: start: 2020
  7. ALLOPURINOL [Concomitant]
     Active Substance: ALLOPURINOL
     Indication: Hyperuricaemia
     Dosage: ALLOPURINOL 100 MG/D??SINCE JAN/24 100MG 1-0-0
     Dates: start: 202403

REACTIONS (1)
  - Atrioventricular block [Not Recovered/Not Resolved]

NARRATIVE: CASE EVENT DATE: 20240901
